FAERS Safety Report 14689763 (Version 6)
Quarter: 2018Q2

REPORT INFORMATION
  Report Type: Spontaneous
  Country: US (occurrence: US)
  Receive Date: 20180328
  Receipt Date: 20180607
  Transmission Date: 20180711
  Serious: Yes (Congenital Anomaly, Other)
  Sender: FDA-Public Use
  Company Number: PHEH2018US011257

PATIENT
  Sex: Male

DRUGS (2)
  1. ZOFRAN ODT [Suspect]
     Active Substance: ONDANSETRON HYDROCHLORIDE
     Indication: FOETAL EXPOSURE DURING PREGNANCY
     Dosage: MOTHER DOSE: 1 DF, QD
     Route: 064
  2. ZOFRAN [Suspect]
     Active Substance: ONDANSETRON HYDROCHLORIDE
     Indication: FOETAL EXPOSURE DURING PREGNANCY
     Route: 064

REACTIONS (37)
  - Aorta hypoplasia [Unknown]
  - Mitral valve incompetence [Unknown]
  - Rhinorrhoea [Unknown]
  - Ventricular septal defect [Unknown]
  - Infantile apnoea [Unknown]
  - Bradycardia neonatal [Unknown]
  - Left ventricular hypertrophy [Unknown]
  - Injury [Unknown]
  - Constipation [Unknown]
  - Candida infection [Unknown]
  - Pulmonary valve incompetence [Unknown]
  - Cardiac tamponade [Unknown]
  - Aortic dilatation [Unknown]
  - Right-to-left cardiac shunt [Unknown]
  - Left atrial enlargement [Unknown]
  - Bundle branch block right [Unknown]
  - Foetal exposure during pregnancy [Unknown]
  - Double outlet right ventricle [Unknown]
  - Pericardial disease [Unknown]
  - Gastrooesophageal reflux disease [Unknown]
  - Coarctation of the aorta [Unknown]
  - Laevocardia [Unknown]
  - Patent ductus arteriosus [Unknown]
  - Pulmonary artery stenosis [Unknown]
  - Right ventricular enlargement [Unknown]
  - Cough [Unknown]
  - Transposition of the great vessels [Unknown]
  - Left-to-right cardiac shunt [Unknown]
  - Rash [Unknown]
  - Atrial septal defect [Unknown]
  - Heart disease congenital [Unknown]
  - Hypoglycaemia neonatal [Unknown]
  - Tricuspid valve incompetence [Unknown]
  - Bronchiolitis [Unknown]
  - Pyrexia [Unknown]
  - Upper respiratory tract infection [Unknown]
  - Cardiomegaly [Unknown]
